FAERS Safety Report 7053680-9 (Version None)
Quarter: 2010Q4

REPORT INFORMATION
  Report Type: 
  Country: None (occurrence: None)
  Receive Date: 20101020
  Receipt Date: 20101012
  Transmission Date: 20110411
  Serious: Yes (Hospitalization)
  Sender: FDA-Public Use
  Company Number: US-GILEAD-2010-0032203

PATIENT
  Age: 68 Year
  Sex: Female
  Weight: 64.468 kg

DRUGS (14)
  1. LETAIRIS [Suspect]
     Indication: PULMONARY ARTERIAL HYPERTENSION
     Route: 048
     Dates: start: 20100920
  2. ASPIRIN [Concomitant]
  3. CARTIA XT [Concomitant]
  4. DIGOXIN [Concomitant]
  5. TRANDOLAPRIL [Concomitant]
  6. BACTRIM DS [Concomitant]
  7. PREDNISONE [Concomitant]
  8. AZATHIOPRINE [Concomitant]
  9. SUCRALFATE [Concomitant]
  10. OMEPRAZOLE [Concomitant]
  11. SIMVASTATIN [Concomitant]
  12. SYMBICORT [Concomitant]
  13. N-ACETYL-L-CYSTEINE [Concomitant]
  14. IRON [Concomitant]

REACTIONS (4)
  - DYSPNOEA [None]
  - EPISTAXIS [None]
  - OXYGEN SATURATION DECREASED [None]
  - SWELLING [None]
